FAERS Safety Report 9062986 (Version 3)
Quarter: 2013Q3

REPORT INFORMATION
  Report Type: Spontaneous
  Country: US (occurrence: US)
  Receive Date: 20130213
  Receipt Date: 20130716
  Transmission Date: 20140515
  Serious: Yes (Hospitalization)
  Sender: FDA-Public Use
  Company Number: US-BAYER-2013-018295

PATIENT
  Age: 40 Year
  Sex: Female
  Weight: 63.49 kg

DRUGS (20)
  1. YASMIN [Suspect]
     Indication: CONTRACEPTION
     Dosage: UNK
     Dates: start: 200905, end: 201004
  2. OCELLA [Suspect]
     Indication: ENDOMETRIOSIS
     Dosage: UNK
     Dates: start: 200905, end: 201004
  3. OCELLA [Suspect]
     Indication: ADENOMYOSIS
  4. OCELLA [Suspect]
     Indication: CONTRACEPTION
  5. TOPAMAX [Concomitant]
     Indication: MIGRAINE
     Dosage: 100 MG, UNK
  6. VALTREX [Concomitant]
     Indication: ANTIVIRAL TREATMENT
     Dosage: 500 MG, UNK
     Dates: start: 2009
  7. FIORINAL [ACETYLSALICYLIC ACID,BUTALBITAL,CAFFEINE] [Concomitant]
     Indication: MIGRAINE
     Dosage: UNK
  8. ZOLOFT [Concomitant]
     Dosage: UNK
  9. TRAZODONE [Concomitant]
     Dosage: UNK
  10. AMBIEN [Concomitant]
     Indication: SLEEP DISORDER
     Dosage: UNK
     Dates: start: 2010
  11. AMBIEN [Concomitant]
     Indication: MIGRAINE
  12. RELPAX [Concomitant]
     Indication: HEADACHE
     Dosage: UNK
     Dates: start: 2005
  13. PERCOCET [OXYCODONE HYDROCHLORIDE,PARACETAMOL] [Concomitant]
     Indication: PAIN MANAGEMENT
     Dosage: UNK
  14. MORPHINE [Concomitant]
     Dosage: UNK
  15. COLACE [Concomitant]
     Indication: CONSTIPATION PROPHYLAXIS
  16. MULTIVITAMINS [Concomitant]
  17. VITAMIN D [Concomitant]
  18. PHENERGAN [Concomitant]
     Dosage: UNK
     Dates: start: 2009
  19. XANAX [Concomitant]
     Dosage: UNK
     Dates: start: 2003
  20. PROMETHAZINE [Concomitant]
     Dosage: UNK
     Dates: start: 1999

REACTIONS (8)
  - Pulmonary embolism [Recovered/Resolved]
  - Deep vein thrombosis [Recovered/Resolved]
  - Injury [Recovered/Resolved]
  - Pain [Recovered/Resolved]
  - Emotional distress [None]
  - General physical health deterioration [Recovered/Resolved]
  - Anxiety [None]
  - Pain [None]
